FAERS Safety Report 7256294-0 (Version None)
Quarter: 2011Q1

REPORT INFORMATION
  Report Type: 
  Country: None (occurrence: None)
  Receive Date: 20110129
  Receipt Date: 20100521
  Transmission Date: 20110831
  Serious: No
  Sender: FDA-Public Use
  Company Number: US-ABBOTT-10P-163-0646551-00

PATIENT
  Sex: Male
  Weight: 90.8 kg

DRUGS (4)
  1. TAR SHAMPOO [Concomitant]
     Indication: PSORIASIS
     Route: 061
  2. HUMIRA [Suspect]
     Indication: PSORIASIS
     Route: 058
     Dates: start: 20100406, end: 20100429
  3. TEMOVATE SOLUTION [Concomitant]
     Indication: PSORIASIS
     Dosage: ON SCALP
     Route: 061
  4. HUMIRA [Suspect]
     Route: 058

REACTIONS (2)
  - INCORRECT DOSE ADMINISTERED [None]
  - MASS [None]
